FAERS Safety Report 23808841 (Version 1)
Quarter: 2024Q2

REPORT INFORMATION
  Report Type: Spontaneous
  Country: ES (occurrence: ES)
  Receive Date: 20240502
  Receipt Date: 20240502
  Transmission Date: 20240716
  Serious: Yes (Other)
  Sender: FDA-Public Use
  Company Number: ES-GRANULES-ES-2024GRALIT00140

PATIENT
  Age: 38 Year
  Sex: Female

DRUGS (1)
  1. COLCHICINE [Suspect]
     Active Substance: COLCHICINE
     Indication: Immunomodulatory therapy
     Route: 065

REACTIONS (3)
  - COVID-19 [Recovered/Resolved]
  - Drug withdrawal syndrome [Recovered/Resolved]
  - Product use in unapproved indication [Unknown]
